FAERS Safety Report 5639709-0 (Version None)
Quarter: 2008Q1

REPORT INFORMATION
  Report Type: 
  Country: None (occurrence: None)
  Receive Date: 20080222
  Receipt Date: 20080206
  Transmission Date: 20080703
  Serious: Yes (Other)
  Sender: FDA-Public Use
  Company Number: VER_00101_2008

PATIENT
  Sex: Female

DRUGS (1)
  1. EPINEPHRINE [Suspect]
     Indication: ANAPHYLACTIC REACTION
     Dosage: (INTRAMUSCULAR/SUBCUTANEOUS)
     Dates: start: 20080121

REACTIONS (1)
  - DEVICE MALFUNCTION [None]
